FAERS Safety Report 18665053 (Version 1)
Quarter: 2020Q4

REPORT INFORMATION
  Report Type: Spontaneous
  Country: US (occurrence: US)
  Receive Date: 20201225
  Receipt Date: 20201225
  Transmission Date: 20210114
  Serious: Yes (Death, Other)
  Sender: FDA-Public Use
  Company Number: NVSC2020US342920

PATIENT

DRUGS (3)
  1. RANITIDINE. [Suspect]
     Active Substance: RANITIDINE
     Indication: PRODUCT USED FOR UNKNOWN INDICATION
     Dosage: UNK
     Route: 065
     Dates: start: 200101, end: 201808
  2. RANITIDINE. [Suspect]
     Active Substance: RANITIDINE
     Indication: PRODUCT USED FOR UNKNOWN INDICATION
     Dosage: UNK
     Route: 065
     Dates: start: 200101, end: 201808
  3. ZANTAC [Suspect]
     Active Substance: RANITIDINE HYDROCHLORIDE
     Indication: PRODUCT USED FOR UNKNOWN INDICATION
     Dosage: UNK
     Route: 065
     Dates: start: 200101, end: 201808

REACTIONS (9)
  - Gastric cancer [Fatal]
  - Hepatic cancer [Fatal]
  - Nasal cavity cancer [Fatal]
  - Brain neoplasm [Fatal]
  - Lung neoplasm malignant [Fatal]
  - Oesophageal carcinoma [Fatal]
  - Bone cancer [Fatal]
  - Throat cancer [Fatal]
  - Injury [Unknown]

NARRATIVE: CASE EVENT DATE: 201811
